FAERS Safety Report 5705296-1 (Version None)
Quarter: 2008Q2

REPORT INFORMATION
  Report Type: 
  Country: None (occurrence: None)
  Receive Date: 20080410
  Receipt Date: 20080401
  Transmission Date: 20081010
  Serious: Yes (Hospitalization)
  Sender: FDA-Public Use
  Company Number: 062-C5013-07121240

PATIENT
  Age: 68 Year
  Sex: Female
  Weight: 56 kg

DRUGS (6)
  1. CC-5013\PLACEBO (LENALIDOMIDE)(CAPSULES) [Suspect]
     Indication: MULTIPLE MYELOMA
     Dosage: 10 MG, DAILY ON DAYS 1-21, ORAL;  10 MG, DAILY, ORAL
     Route: 048
     Dates: start: 20070609, end: 20071212
  2. CC-5013\PLACEBO (LENALIDOMIDE)(CAPSULES) [Suspect]
     Indication: MULTIPLE MYELOMA
     Dosage: 10 MG, DAILY ON DAYS 1-21, ORAL;  10 MG, DAILY, ORAL
     Route: 048
     Dates: start: 20071222
  3. MELPHALAN (MELPHALAN) [Suspect]
     Indication: MULTIPLE MYELOMA
     Dosage: 10 MG, DAILY ON DAYS 1-4, ORAL
     Route: 048
     Dates: start: 20070609
  4. PREDNISONE TAB [Suspect]
     Indication: MULTIPLE MYELOMA
     Dosage: 116 MG, DAILY ON DAYS 1-4, ORAL
     Route: 048
     Dates: start: 20070609
  5. MARCUMAR [Concomitant]
  6. BIOSORB [Concomitant]

REACTIONS (15)
  - AORTIC ARTERIOSCLEROSIS [None]
  - BLOOD PRESSURE INCREASED [None]
  - CARDIAC DISORDER [None]
  - CARDIOMEGALY [None]
  - DILATATION VENTRICULAR [None]
  - FEBRILE NEUTROPENIA [None]
  - HAEMATOCRIT DECREASED [None]
  - HAEMOGLOBIN DECREASED [None]
  - INFECTION [None]
  - KYPHOSIS [None]
  - LEUKOPENIA [None]
  - OSTEOPOROSIS [None]
  - RENAL DISORDER [None]
  - SPINAL OSTEOARTHRITIS [None]
  - VIRAL INFECTION [None]
